FAERS Safety Report 26123142 (Version 1)
Quarter: 2025Q4

REPORT INFORMATION
  Report Type: Spontaneous
  Country: US (occurrence: None)
  Receive Date: 20251203
  Receipt Date: 20251203
  Transmission Date: 20260118
  Serious: Yes (Life-Threatening, Disabling, Other)
  Sender: FDA-CTU
  Company Number: None

PATIENT

DRUGS (1)
  1. SPRAVATO [Suspect]
     Active Substance: ESKETAMINE

REACTIONS (6)
  - Intentional product use issue [None]
  - Drug monitoring procedure not performed [None]
  - Wrong technique in product usage process [None]
  - Product dispensed by unauthorised provider [None]
  - Product administered from unauthorised provider [None]
  - Manufacturing laboratory analytical testing issue [None]

NARRATIVE: CASE EVENT DATE: 20251101
